FAERS Safety Report 22309847 (Version 1)
Quarter: 2023Q2

REPORT INFORMATION
  Report Type: Spontaneous
  Country: US (occurrence: None)
  Receive Date: 20230510
  Receipt Date: 20230510
  Transmission Date: 20230722
  Serious: Yes (Hospitalization)
  Sender: FDA-Public Use
  Company Number: None

PATIENT
  Age: 12 Year
  Sex: Female
  Weight: 50.4 kg

DRUGS (2)
  1. LEVETIRACETAM [Suspect]
     Active Substance: LEVETIRACETAM
     Indication: Epilepsy
     Dosage: OTHER QUANTITY : 10 ML;?FREQUENCY : TWICE A DAY;?
     Route: 048
  2. VALTOCO [Concomitant]
     Active Substance: DIAZEPAM

REACTIONS (1)
  - Seizure [None]

NARRATIVE: CASE EVENT DATE: 20141014
